FAERS Safety Report 7517949-3 (Version None)
Quarter: 2011Q2

REPORT INFORMATION
  Report Type: 
  Country: None (occurrence: None)
  Receive Date: 20110527
  Receipt Date: 20110527
  Transmission Date: 20111010
  Serious: Yes (Other)
  Sender: FDA-Public Use
  Company Number: None

PATIENT
  Age: 75 Year
  Sex: Male

DRUGS (12)
  1. PROCHLORPERAZINE TAB [Concomitant]
  2. TERAZOSIN [Concomitant]
  3. CYCLOBENZAPRINE [Concomitant]
  4. REVLIMID [Suspect]
     Indication: MULTIPLE MYELOMA
     Dosage: REVLIMID 10MG EVERY OTHER DAY ORALLY
     Route: 048
     Dates: start: 20110101, end: 20110201
  5. OMEPRAZOLE [Concomitant]
  6. DOCUSATE [Concomitant]
  7. LEVETIRACETAM [Concomitant]
  8. HYDROCODONE BITARTRATE AND ACETAMINOPHEN [Concomitant]
  9. ALLOPURINOL [Concomitant]
  10. REVLIMID [Suspect]
     Indication: MULTIPLE MYELOMA
     Dosage: REVLIMID 15MG EVERY OTHER DAY ORALLY
     Route: 048
     Dates: start: 20101101, end: 20110101
  11. VALACYCLOVIR [Concomitant]
  12. ASPIRIN [Concomitant]

REACTIONS (2)
  - HOT FLUSH [None]
  - RASH MACULO-PAPULAR [None]
